FAERS Safety Report 8436276-3 (Version None)
Quarter: 2012Q2

REPORT INFORMATION
  Report Type: 
  Country: None (occurrence: None)
  Receive Date: 20120614
  Receipt Date: 20120607
  Transmission Date: 20120825
  Serious: Yes (Disabling)
  Sender: FDA-Public Use
  Company Number: ES-ABBOTT-12P-144-0943677-00

PATIENT
  Sex: Female
  Weight: 60 kg

DRUGS (4)
  1. UNKNOWN MEDICATION [Concomitant]
     Indication: DYSLIPIDAEMIA
  2. HUMIRA [Suspect]
     Indication: PSORIASIS
     Dosage: INDUCTION
     Route: 058
     Dates: start: 20100708, end: 20100708
  3. UNKNOWN MEDICATION [Concomitant]
     Indication: DEPRESSION
  4. HUMIRA [Suspect]
     Route: 058
     Dates: start: 20100715

REACTIONS (1)
  - DEAFNESS NEUROSENSORY [None]
